FAERS Safety Report 4495453-7 (Version None)
Quarter: 2004Q4

REPORT INFORMATION
  Report Type: 
  Country: None (occurrence: None)
  Receive Date: 20041108
  Receipt Date: 20041025
  Transmission Date: 20050328
  Serious: Yes (Life-Threatening, Hospitalization)
  Sender: FDA-Public Use
  Company Number: 200420608GDDC

PATIENT
  Age: 20 Year
  Sex: Male
  Weight: 79 kg

DRUGS (6)
  1. DAUNORUBICIN [Suspect]
     Indication: ACUTE MONOCYTIC LEUKAEMIA
     Route: 042
     Dates: start: 20040911
  2. ETOPOSIDE [Concomitant]
     Route: 042
     Dates: start: 20040907, end: 20040911
  3. CYTARABINE [Concomitant]
     Indication: ACUTE MONOCYTIC LEUKAEMIA
     Route: 042
     Dates: start: 20040907, end: 20040916
  4. ACYCLOVIR [Concomitant]
     Route: 048
     Dates: start: 20040903
  5. DOMPERIDONE [Concomitant]
     Route: 048
     Dates: start: 20040903
  6. GRANISETRON [Concomitant]
     Route: 048

REACTIONS (4)
  - CHEST PAIN [None]
  - GENERAL PHYSICAL HEALTH DETERIORATION [None]
  - MYOPERICARDITIS [None]
  - SEPTIC SHOCK [None]
